FAERS Safety Report 14992737 (Version 1)
Quarter: 2018Q2

REPORT INFORMATION
  Report Type: Spontaneous
  Country: BE (occurrence: BE)
  Receive Date: 20180609
  Receipt Date: 20180609
  Transmission Date: 20180711
  Serious: Yes (Hospitalization)
  Sender: FDA-Public Use
  Company Number: BE-JNJFOC-20180537835

PATIENT

DRUGS (7)
  1. PARACETAMOL [Concomitant]
     Active Substance: ACETAMINOPHEN
     Indication: PRODUCT USED FOR UNKNOWN INDICATION
     Route: 065
  2. PERDOPHEN SIROP 2% 100ML [Suspect]
     Active Substance: IBUPROFEN LYSINE
     Route: 065
  3. IBUPROFEN. [Suspect]
     Active Substance: IBUPROFEN
     Route: 065
  4. IBUPROFEN. [Suspect]
     Active Substance: IBUPROFEN
     Indication: PYREXIA
     Route: 065
  5. DOMPERIDONE [Concomitant]
     Active Substance: DOMPERIDONE
     Indication: PRODUCT USED FOR UNKNOWN INDICATION
     Route: 065
  6. OSELTAMIVIR [Concomitant]
     Active Substance: OSELTAMIVIR
     Indication: PRODUCT USED FOR UNKNOWN INDICATION
     Route: 065
  7. PERDOPHEN SIROP 2% 100ML [Suspect]
     Active Substance: IBUPROFEN LYSINE
     Indication: PYREXIA
     Route: 065

REACTIONS (6)
  - Acute kidney injury [Unknown]
  - Product use issue [Unknown]
  - Wrong drug administered [Unknown]
  - Septic shock [Unknown]
  - Vomiting [Unknown]
  - Product name confusion [Unknown]
